FAERS Safety Report 21335435 (Version 1)
Quarter: 2022Q3

REPORT INFORMATION
  Report Type: Spontaneous
  Country: ES (occurrence: ES)
  Receive Date: 20220915
  Receipt Date: 20220915
  Transmission Date: 20221026
  Serious: Yes (Life-Threatening, Hospitalization)
  Sender: FDA-Public Use
  Company Number: None

PATIENT
  Age: 60 Year
  Sex: Male

DRUGS (4)
  1. MYCOPHENOLATE MOFETIL [Suspect]
     Active Substance: MYCOPHENOLATE MOFETIL
     Indication: Renal transplant
     Dosage: UNIT DOSE : 500 MG, FREQUENCY TIME : 12 HOURS,   DURATION : 943 DAYS
     Route: 065
     Dates: start: 20191116, end: 20220616
  2. TACROLIMUS [Suspect]
     Active Substance: TACROLIMUS
     Indication: Renal transplant
     Dosage: ADJUSTED TO LEVELS, TACROLIMUS (2694A) , DURATION : 954 DAYS
     Route: 065
     Dates: start: 20191116, end: 20220627
  3. PREDNISONE [Concomitant]
     Active Substance: PREDNISONE
     Indication: Renal transplant
     Dosage: PREDNISON (886A) , UNIT DOSE : 5 MG, FREQUENCY TIME : 1 DAY , DURATION : 864 DAYS
     Dates: start: 20200213, end: 20220626
  4. PREDNISONE [Concomitant]
     Active Substance: PREDNISONE
     Dosage: UNIT DOSE : 10  MG, FREQUENCY TIME : 1 DAY , DURATION : 821  DAYS
     Dates: start: 20191116, end: 20220213

REACTIONS (1)
  - Diffuse large B-cell lymphoma stage IV [Not Recovered/Not Resolved]

NARRATIVE: CASE EVENT DATE: 20220101
